FAERS Safety Report 18144759 (Version 1)
Quarter: 2020Q3

REPORT INFORMATION
  Report Type: Spontaneous
  Country: US (occurrence: US)
  Receive Date: 20200812
  Receipt Date: 20200812
  Transmission Date: 20201103
  Serious: Yes (Other)
  Sender: FDA-Public Use
  Company Number: None

PATIENT
  Sex: Female

DRUGS (1)
  1. ARMODAFINIL 250 MG [Suspect]
     Active Substance: ARMODAFINIL

REACTIONS (3)
  - Nausea [None]
  - Disorientation [None]
  - Headache [None]
